FAERS Safety Report 4334235-3 (Version None)
Quarter: 2004Q2

REPORT INFORMATION
  Report Type: 
  Country: None (occurrence: None)
  Receive Date: 20040405
  Receipt Date: 20040323
  Transmission Date: 20050107
  Serious: Yes (Hospitalization)
  Sender: FDA-Public Use
  Company Number: S04-USA-01557-01

PATIENT
  Age: 78 Year
  Sex: Female

DRUGS (7)
  1. NAMENDA [Suspect]
     Indication: DEMENTIA ALZHEIMER'S TYPE
     Dosage: 10 MG QAM PO
     Route: 048
     Dates: start: 20040317
  2. NAMENDA [Suspect]
     Indication: DEMENTIA ALZHEIMER'S TYPE
     Dosage: 5 MG QHS PO
     Route: 048
     Dates: start: 20040317
  3. NAMENDA [Suspect]
     Indication: DEMENTIA ALZHEIMER'S TYPE
     Dosage: 5 MG QD PO
     Route: 048
     Dates: start: 20040303, end: 20040309
  4. NAMENDA [Suspect]
     Indication: DEMENTIA ALZHEIMER'S TYPE
     Dosage: 5 MG BID PO
     Route: 048
     Dates: start: 20040310, end: 20040316
  5. ARICEPT [Concomitant]
  6. ZOCOR [Concomitant]
  7. LIPITOR [Concomitant]

REACTIONS (5)
  - FAECAL INCONTINENCE [None]
  - FLUSHING [None]
  - TREMOR [None]
  - URINARY INCONTINENCE [None]
  - URINARY TRACT INFECTION [None]
